FAERS Safety Report 12464674 (Version 1)
Quarter: 2016Q2

REPORT INFORMATION
  Report Type: Spontaneous
  Country: US (occurrence: US)
  Receive Date: 20160614
  Receipt Date: 20160614
  Transmission Date: 20160815
  Serious: No
  Sender: FDA-Public Use
  Company Number: US-ACTELION-A-US2016-136924

PATIENT
  Age: 53 Year
  Sex: Female

DRUGS (9)
  1. AMLODIPINE [Concomitant]
     Active Substance: AMLODIPINE BESYLATE
  2. METOLAZONE. [Concomitant]
     Active Substance: METOLAZONE
  3. TRAMADOL. [Concomitant]
     Active Substance: TRAMADOL
  4. CYCLOBENZAPRINE [Concomitant]
     Active Substance: CYCLOBENZAPRINE
  5. XYZAL [Concomitant]
     Active Substance: LEVOCETIRIZINE DIHYDROCHLORIDE
  6. OPSUMIT [Suspect]
     Active Substance: MACITENTAN
     Indication: PULMONARY ARTERIAL HYPERTENSION
     Dosage: 10 MG, QD
     Route: 048
     Dates: start: 20160503
  7. AZATHIOPRINE. [Concomitant]
     Active Substance: AZATHIOPRINE
  8. CLONIDINE. [Concomitant]
     Active Substance: CLONIDINE
  9. PROAIR HFA [Concomitant]
     Active Substance: ALBUTEROL SULFATE

REACTIONS (2)
  - Anaemia [Unknown]
  - Tooth infection [Unknown]

NARRATIVE: CASE EVENT DATE: 20160519
